FAERS Safety Report 9331674 (Version 2)
Quarter: 2013Q2

REPORT INFORMATION
  Report Type: Spontaneous
  Country: US (occurrence: US)
  Receive Date: 20130605
  Receipt Date: 20130624
  Transmission Date: 20140414
  Serious: Yes (Other)
  Sender: FDA-Public Use
  Company Number: US-PFIZER INC-2013165777

PATIENT
  Sex: 0

DRUGS (2)
  1. ZYVOX [Suspect]
     Indication: STAPHYLOCOCCAL INFECTION
     Dosage: 600 MG, 3X/DAY
     Route: 048
     Dates: start: 20111006, end: 20111016
  2. ZYVOX [Suspect]
     Dosage: 600 MG, 3X/DAY
     Route: 048
     Dates: end: 20130320

REACTIONS (2)
  - Drug ineffective [Not Recovered/Not Resolved]
  - Staphylococcal infection [Not Recovered/Not Resolved]
